FAERS Safety Report 5023121-1 (Version None)
Quarter: 2006Q2

REPORT INFORMATION
  Report Type: 
  Country: None (occurrence: None)
  Receive Date: 20060525
  Receipt Date: 20060525
  Transmission Date: 20061013
  Serious: Yes (Other)
  Sender: FDA-Public Use
  Company Number: None

PATIENT
  Sex: Female
  Weight: 81.1939 kg

DRUGS (1)
  1. PARAGUARD IUD [Suspect]
     Dates: start: 20040929, end: 20060427

REACTIONS (3)
  - DEVICE FAILURE [None]
  - IUD MIGRATION [None]
  - PREGNANCY WITH CONTRACEPTIVE DEVICE [None]
